FAERS Safety Report 10685768 (Version 4)
Quarter: 2015Q1

REPORT INFORMATION
  Report Type: Spontaneous
  Country: US (occurrence: US)
  Receive Date: 20141231
  Receipt Date: 20150113
  Transmission Date: 20150720
  Serious: No
  Sender: FDA-Public Use
  Company Number: US-PFIZER INC-2014318298

PATIENT
  Sex: Female

DRUGS (1)
  1. ALPRAZOLAM. [Suspect]
     Active Substance: ALPRAZOLAM
     Indication: ANXIETY
     Dosage: 0.25MG TAKEN AS 1/4 TO 1/2 ONCE OR TWICE DAILY AS NEEDED
     Route: 048
     Dates: start: 2009, end: 20141223

REACTIONS (3)
  - Sedation [Recovered/Resolved]
  - Drug ineffective [Not Recovered/Not Resolved]
  - Anxiety [Not Recovered/Not Resolved]
